FAERS Safety Report 15390260 (Version 1)
Quarter: 2018Q3

REPORT INFORMATION
  Report Type: Spontaneous
  Country: US (occurrence: US)
  Receive Date: 20180908
  Receipt Date: 20180908
  Transmission Date: 20181010
  Serious: Yes (Disabling)
  Sender: FDA-Public Use
  Company Number: None

PATIENT
  Age: 35 Year
  Sex: Female

DRUGS (1)
  1. METHYLPHENIDATE ER [Suspect]
     Active Substance: METHYLPHENIDATE
     Indication: ATTENTION DEFICIT/HYPERACTIVITY DISORDER
     Dosage: ?          QUANTITY:30 TABLET(S);?
     Route: 048
     Dates: start: 20180113, end: 20180713

REACTIONS (7)
  - Palpitations [None]
  - Drug effect decreased [None]
  - Product substitution issue [None]
  - Tachyphrenia [None]
  - Anxiety [None]
  - Heart rate increased [None]
  - Therapeutic response changed [None]

NARRATIVE: CASE EVENT DATE: 20180220
